FAERS Safety Report 6427800-0 (Version None)
Quarter: 2009Q4

REPORT INFORMATION
  Report Type: 
  Country: None (occurrence: None)
  Receive Date: 20091104
  Receipt Date: 20091104
  Transmission Date: 20100525
  Serious: No
  Sender: FDA-Public Use
  Company Number: None

PATIENT
  Sex: Male

DRUGS (1)
  1. FENTANYL CITRATE [Suspect]
     Indication: PAIN
     Dosage: T-PATCH 25 MCG EVERY 72 HOURS TOPICAL
     Route: 061

REACTIONS (2)
  - DRUG INEFFECTIVE [None]
  - PRODUCT ADHESION ISSUE [None]
